FAERS Safety Report 5066876-2 (Version None)
Quarter: 2006Q3

REPORT INFORMATION
  Report Type: 
  Country: None (occurrence: None)
  Receive Date: 20060726
  Receipt Date: 20060713
  Transmission Date: 20061208
  Serious: Yes (Hospitalization)
  Sender: FDA-Public Use
  Company Number: 2006087151

PATIENT
  Sex: 0

DRUGS (3)
  1. SILDENAFIL (PAH) (SILDENAFIL) [Suspect]
     Indication: PULMONARY HYPERTENSION
     Dosage: ORAL
     Route: 048
     Dates: start: 20030601
  2. WARFARIN SODIUM [Concomitant]
  3. DILTIAZEM [Concomitant]

REACTIONS (4)
  - CATARACT [None]
  - DEAFNESS [None]
  - DEPRESSION [None]
  - TINNITUS [None]
